FAERS Safety Report 11457615 (Version 1)
Quarter: 2015Q3

REPORT INFORMATION
  Report Type: Spontaneous
  Country: CA (occurrence: None)
  Receive Date: 20150902
  Receipt Date: 20150902
  Transmission Date: 20151125
  Serious: Yes (Hospitalization, Other)
  Sender: FDA-Public Use
  Company Number: 2015HINLIT0705

PATIENT
  Age: 32 Year
  Sex: Female

DRUGS (7)
  1. LITHIUM. [Suspect]
     Active Substance: LITHIUM
     Indication: BIPOLAR DISORDER
  2. CYMBALATA (CYMBALATA) [Concomitant]
  3. NORTRYPTILINE (NORTRYPTILINE) [Concomitant]
  4. CIPRALEX  (CIPRALEX) [Concomitant]
  5. GABAPENTIN (GABAPENTIN) [Concomitant]
     Active Substance: GABAPENTIN
  6. SYNTHROID [Concomitant]
     Active Substance: LEVOTHYROXINE SODIUM
  7. IBUPROFEN (IBUPROFEN) [Concomitant]
     Active Substance: IBUPROFEN

REACTIONS (3)
  - Glomerulonephritis minimal lesion [None]
  - Acute kidney injury [None]
  - Blood pressure decreased [None]
